FAERS Safety Report 6895664-7 (Version None)
Quarter: 2010Q3

REPORT INFORMATION
  Report Type: 
  Country: None (occurrence: None)
  Receive Date: 20100730
  Receipt Date: 20100730
  Transmission Date: 20110219
  Serious: Yes (Other)
  Sender: FDA-Public Use
  Company Number: None

PATIENT
  Age: 80 Year
  Sex: Female
  Weight: 38.6 kg

DRUGS (2)
  1. LISINOPRIL [Suspect]
     Indication: HYPERTENSION
     Dosage: 40MG QD PO
     Route: 048
     Dates: start: 20100114, end: 20100709
  2. LISINOPRIL [Suspect]
     Indication: HYPERTENSION
     Dosage: 40MG QD PO
     Route: 048
     Dates: start: 20100710, end: 20100714

REACTIONS (2)
  - ANGIOEDEMA [None]
  - LIP SWELLING [None]
